FAERS Safety Report 15616801 (Version 1)
Quarter: 2018Q4

REPORT INFORMATION
  Report Type: Spontaneous
  Country: US (occurrence: US)
  Receive Date: 20181109
  Receipt Date: 20181109
  Transmission Date: 20190205
  Serious: No
  Sender: FDA-Public Use
  Company Number: None

PATIENT
  Sex: Female

DRUGS (14)
  1. YAZ [Concomitant]
     Active Substance: DROSPIRENONE\ETHINYL ESTRADIOL
  2. GANIRLEIX [Concomitant]
  3. AZITHROMYCIN ANHYDROUS. [Concomitant]
     Active Substance: AZITHROMYCIN ANHYDROUS
  4. ESCITALOPRAM [Concomitant]
     Active Substance: ESCITALOPRAM OXALATE
  5. MEFENAM [Concomitant]
     Active Substance: MEFENAMIC ACID
  6. ENDOMETRIN [Concomitant]
     Active Substance: PROGESTERONE
  7. LIDOCAINE. [Concomitant]
     Active Substance: LIDOCAINE
  8. HCG [Concomitant]
     Active Substance: GONADOTROPHIN, CHORIONIC
  9. MINIVELLE [Concomitant]
     Active Substance: ESTRADIOL
  10. CABERGOLINE. [Concomitant]
     Active Substance: CABERGOLINE
  11. MENOPUR [Concomitant]
     Active Substance: FOLLITROPIN\LUTEINIZING HORMONE
  12. FOLLISTIM [Suspect]
     Active Substance: FOLLITROPIN
     Indication: INFERTILITY FEMALE
     Route: 058
     Dates: start: 20181101
  13. MENOPUR [Concomitant]
     Active Substance: FOLLITROPIN\LUTEINIZING HORMONE
  14. LETROZOLE. [Concomitant]
     Active Substance: LETROZOLE

REACTIONS (1)
  - Pruritus [None]
